APPROVED DRUG PRODUCT: MAGNESIUM SULFATE
Active Ingredient: MAGNESIUM SULFATE
Strength: 3GM/100ML (30MG/ML)
Dosage Form/Route: INJECTABLE;INJECTION
Application: A211966 | Product #004
Applicant: BAXTER HEALTHCARE CORP
Approved: Jan 8, 2026 | RLD: No | RS: Yes | Type: RX